FAERS Safety Report 23270474 (Version 1)
Quarter: 2023Q4

REPORT INFORMATION
  Report Type: Spontaneous
  Country: CH (occurrence: CH)
  Receive Date: 20231207
  Receipt Date: 20231207
  Transmission Date: 20240110
  Serious: Yes (Hospitalization, Other)
  Sender: FDA-Public Use
  Company Number: None

PATIENT
  Age: 45 Year
  Sex: Female
  Weight: 89.6 kg

DRUGS (26)
  1. ENOXAPARIN SODIUM [Suspect]
     Active Substance: ENOXAPARIN SODIUM
     Indication: Pulmonary embolism
     Dosage: DOSAGE, ROUTE OF ADMINISTRATION AND EXACT START DATE UNKNOWN (BUT PRESUMABLY STARTING 20231020 ON...
     Dates: start: 202310, end: 20231026
  2. CLOBETASOL [Suspect]
     Active Substance: CLOBETASOL
     Indication: Eczema
     Dosage: EXACT START AND STOP DATE UNKNOWN, BUT STARTED AFTER 202308 AND STOPPED LATEST BY 20231020. LARGE...
     Route: 061
     Dates: end: 202310
  3. XARELTO [Concomitant]
     Active Substance: RIVAROXABAN
     Indication: Pulmonary embolism
     Dosage: 20 MG, CONT
     Route: 048
     Dates: start: 20230225, end: 20231020
  4. ESCITALOPRAM [Concomitant]
     Active Substance: ESCITALOPRAM OXALATE
     Dosage: UNCLEAR WHETHER 10 OR 40 MG WERE GIVEN
     Route: 048
     Dates: end: 20231020
  5. ESCITALOPRAM [Concomitant]
     Active Substance: ESCITALOPRAM OXALATE
     Dosage: 10 MG, CONT
     Route: 048
     Dates: start: 20231101
  6. EUTHYROX [Concomitant]
     Active Substance: LEVOTHYROXINE SODIUM
     Indication: Autoimmune thyroiditis
     Dosage: 100 UG, CONT
     Route: 048
  7. CALCIUM CARBONATE\CHOLECALCIFEROL [Concomitant]
     Active Substance: CALCIUM CARBONATE\CHOLECALCIFEROL
     Dosage: 500 MG/800 IU
     Route: 048
     Dates: end: 20231020
  8. METFORMIN [Concomitant]
     Active Substance: METFORMIN HYDROCHLORIDE
     Indication: Type 2 diabetes mellitus
     Dosage: UNK
     Route: 048
     Dates: end: 20231020
  9. TORSEMIDE [Concomitant]
     Active Substance: TORSEMIDE
     Dosage: UNK
     Route: 048
     Dates: end: 20231020
  10. KCL [Concomitant]
     Active Substance: POTASSIUM CHLORIDE
     Dosage: 2-2-2-2
     Route: 048
     Dates: end: 20231020
  11. KCL [Concomitant]
     Active Substance: POTASSIUM CHLORIDE
     Dosage: 2-2-2-2
     Route: 048
     Dates: start: 20231025
  12. MAGNESIUM ASPARTATE HYDROCHLORIDE [Concomitant]
     Active Substance: MAGNESIUM ASPARTATE HYDROCHLORIDE
     Dosage: 10 MMOL, CONT
     Route: 048
     Dates: end: 20231020
  13. MAGNESIUM ASPARTATE HYDROCHLORIDE [Concomitant]
     Active Substance: MAGNESIUM ASPARTATE HYDROCHLORIDE
     Dosage: 10 MMOL, CONT
     Dates: start: 20231025
  14. SOLU-CORTEF [Concomitant]
     Active Substance: HYDROCORTISONE SODIUM SUCCINATE
     Indication: Adrenocortical insufficiency acute
     Dosage: 50 MG ON 20231020., 200 MG ON 20231021 AND 50 MG ON 20231022
     Dates: start: 20231020, end: 20231022
  15. HYDROCORTISONE [Concomitant]
     Active Substance: HYDROCORTISONE
     Indication: Adrenocortical insufficiency acute
     Dosage: 40 M, CONT
     Route: 048
     Dates: start: 20231022, end: 20231023
  16. HYDROCORTISONE [Concomitant]
     Active Substance: HYDROCORTISONE
     Dosage: 30 MG, CONT
     Route: 048
     Dates: start: 20231024
  17. ABILIFY [Concomitant]
     Active Substance: ARIPIPRAZOLE
     Dosage: 5 MG, CONT
     Route: 048
  18. NOVORAPID [Concomitant]
     Active Substance: INSULIN ASPART
     Dosage: UNK
     Route: 058
     Dates: start: 20231020
  19. DER-MED [Concomitant]
     Dosage: UNK
     Route: 061
     Dates: start: 20231019
  20. GLYCERIN\MINERAL OIL\PETROLATUM [Concomitant]
     Active Substance: GLYCERIN\MINERAL OIL\PETROLATUM
     Dosage: 1-1-1
     Route: 061
     Dates: start: 20231019
  21. MULTILIND HEILPAST [Concomitant]
     Dosage: 1-0-0
     Route: 061
     Dates: start: 20231020
  22. POLIDOCANOL\UREA [Concomitant]
     Active Substance: POLIDOCANOL\UREA
     Dosage: UNK
     Route: 061
     Dates: start: 20231020
  23. SQUA-MED [Concomitant]
     Dosage: UNK
     Route: 061
  24. BENZYDAMINE [Concomitant]
     Active Substance: BENZYDAMINE
     Dosage: UNK
     Dates: start: 20231021
  25. MONOVO [Concomitant]
     Dosage: UNK
     Route: 061
     Dates: start: 20231022
  26. ESOMEPRAZOLE [Concomitant]
     Active Substance: ESOMEPRAZOLE
     Dosage: 40 MG, QD

REACTIONS (4)
  - Adrenocortical insufficiency acute [Recovering/Resolving]
  - Shock haemorrhagic [Recovering/Resolving]
  - Retroperitoneal haemorrhage [Recovering/Resolving]
  - Muscle haemorrhage [Recovering/Resolving]

NARRATIVE: CASE EVENT DATE: 20231020
